FAERS Safety Report 8827919 (Version 2)
Quarter: 2012Q4

REPORT INFORMATION
  Report Type: 
  Country: JP (occurrence: JP)
  Receive Date: 20121005
  Receipt Date: 20121203
  Transmission Date: 20130627
  Serious: Yes (Hospitalization)
  Sender: FDA-Public Use
  Company Number: JP-AMGEN-JPNCT2012063294

PATIENT
  Age: 81 Year
  Sex: Female
  Weight: 54 kg

DRUGS (9)
  1. ROMIPLOSTIM - KHK [Suspect]
     Indication: IDIOPATHIC THROMBOCYTOPENIC PURPURA
     Dosage: 1 mug/kg, qwk
     Route: 058
     Dates: start: 20110824
  2. BONZOL [Concomitant]
     Indication: IDIOPATHIC THROMBOCYTOPENIC PURPURA
     Dosage: 600 mg, qd
     Route: 048
     Dates: end: 20111221
  3. SUNRYTHM [Concomitant]
     Indication: SICK SINUS SYNDROME
     Dosage: UNK
     Route: 048
  4. DEPAS [Concomitant]
     Indication: INSOMNIA
     Dosage: UNK
     Route: 048
  5. HALCION [Concomitant]
     Indication: INSOMNIA
     Dosage: UNK
     Route: 048
  6. AMARYL [Concomitant]
     Indication: DIABETES MELLITUS
     Dosage: UNK
     Route: 048
  7. METGLUCO [Concomitant]
     Indication: DIABETES MELLITUS
     Dosage: UNK
     Route: 048
  8. GASTROZEPIN [Concomitant]
     Indication: GASTRITIS
     Dosage: UNK
     Route: 048
  9. ADONA [Concomitant]
     Indication: PROPHYLAXIS
     Dosage: UNK
     Route: 065

REACTIONS (1)
  - Gastrointestinal haemorrhage [Recovered/Resolved]
